FAERS Safety Report 4516776-9 (Version None)
Quarter: 2004Q4

REPORT INFORMATION
  Report Type: 
  Country: None (occurrence: None)
  Receive Date: 20041005
  Receipt Date: 20040322
  Transmission Date: 20050328
  Serious: Yes (Other)
  Sender: FDA-Public Use
  Company Number: K200400509

PATIENT
  Age: 44 Year
  Sex: Female
  Weight: 74.8 kg

DRUGS (5)
  1. SONATA [Suspect]
     Indication: INSOMNIA
     Dosage: 021320-0203182004
  2. NEURONTIN [Concomitant]
  3. SERZONE [Concomitant]
  4. LEXAPRO [Concomitant]
  5. TAMOXIFEN (TAMOXIFEN) [Concomitant]

REACTIONS (1)
  - AMNESIA [None]
